FAERS Safety Report 7215582-4 (Version None)
Quarter: 2011Q1

REPORT INFORMATION
  Report Type: 
  Country: None (occurrence: None)
  Receive Date: 20110107
  Receipt Date: 20110106
  Transmission Date: 20110831
  Serious: Yes (Other)
  Sender: FDA-Public Use
  Company Number: GB-ROCHE-751705

PATIENT

DRUGS (1)
  1. AVASTIN [Suspect]
     Route: 061

REACTIONS (1)
  - GLOMERULONEPHRITIS [None]
